FAERS Safety Report 13341196 (Version 1)
Quarter: 2017Q1

REPORT INFORMATION
  Report Type: Spontaneous
  Country: US (occurrence: US)
  Receive Date: 20170315
  Receipt Date: 20170315
  Transmission Date: 20170428
  Serious: Yes (Other)
  Sender: FDA-Public Use
  Company Number: None

PATIENT
  Age: 29 Year
  Sex: Female
  Weight: 54 kg

DRUGS (1)
  1. BACTRIM DS [Suspect]
     Active Substance: SULFAMETHOXAZOLE\TRIMETHOPRIM
     Indication: WOUND INFECTION
     Dosage: ?          QUANTITY:1 TABLET(S);?
     Route: 048
     Dates: start: 20170312, end: 20170312

REACTIONS (9)
  - Dizziness [None]
  - Anxiety [None]
  - Paraesthesia [None]
  - Vomiting [None]
  - Insomnia [None]
  - Nausea [None]
  - Hypoaesthesia [None]
  - Tachycardia [None]
  - Chest pain [None]

NARRATIVE: CASE EVENT DATE: 20170312
